FAERS Safety Report 11169839 (Version 1)
Quarter: 2015Q2

REPORT INFORMATION
  Report Type: Spontaneous
  Country: US (occurrence: US)
  Receive Date: 20150607
  Receipt Date: 20150607
  Transmission Date: 20150821
  Serious: Yes (Other)
  Sender: FDA-Public Use
  Company Number: US-ELI_LILLY_AND_COMPANY-US201506001446

PATIENT
  Sex: Female

DRUGS (2)
  1. PROZAC [Suspect]
     Active Substance: FLUOXETINE HYDROCHLORIDE
     Indication: PRODUCT USED FOR UNKNOWN INDICATION
     Dosage: 20 MG, QD
     Route: 065
  2. PAMPRIN [Concomitant]
     Active Substance: IBUPROFEN

REACTIONS (4)
  - Breech presentation [Unknown]
  - Maternal exposure during pregnancy [Recovered/Resolved]
  - Uterine leiomyoma [Unknown]
  - Gestational diabetes [Unknown]
